FAERS Safety Report 25791971 (Version 1)
Quarter: 2025Q3

REPORT INFORMATION
  Report Type: Spontaneous
  Country: US (occurrence: US)
  Receive Date: 20250911
  Receipt Date: 20250911
  Transmission Date: 20251021
  Serious: No
  Sender: SANOFI AVENTIS
  Company Number: US-SA-2025SA269129

PATIENT
  Age: 82 Year
  Sex: Male
  Weight: 91.82 kg

DRUGS (14)
  1. DUPIXENT [Suspect]
     Active Substance: DUPILUMAB
     Indication: Chronic obstructive pulmonary disease
     Dosage: 300 MG, QOW
     Route: 058
  2. MUCINEX [Concomitant]
     Active Substance: GUAIFENESIN
  3. VITAMINS [Concomitant]
     Active Substance: VITAMINS
  4. VITAMIN D2 [Concomitant]
     Active Substance: ERGOCALCIFEROL
  5. OMEPRAZOLE [Concomitant]
     Active Substance: OMEPRAZOLE
  6. TAMSULOSIN HYDROCHLORIDE [Concomitant]
     Active Substance: TAMSULOSIN HYDROCHLORIDE
  7. FEBUXOSTAT [Concomitant]
     Active Substance: FEBUXOSTAT
  8. BUMETANIDE [Concomitant]
     Active Substance: BUMETANIDE
  9. ATORVASTATIN CALCIUM [Concomitant]
     Active Substance: ATORVASTATIN CALCIUM
  10. ELIQUIS [Concomitant]
     Active Substance: APIXABAN
  11. ALBUTEROL SULFATE [Concomitant]
     Active Substance: ALBUTEROL SULFATE
  12. ALBUTEROL SULFATE [Concomitant]
     Active Substance: ALBUTEROL SULFATE
  13. STIOLTO RESPIMAT [Concomitant]
     Active Substance: OLODATEROL HYDROCHLORIDE\TIOTROPIUM BROMIDE MONOHYDRATE
  14. TRELEGY ELLIPTA [Concomitant]
     Active Substance: FLUTICASONE FUROATE\UMECLIDINIUM BROMIDE\VILANTEROL TRIFENATATE
     Route: 055

REACTIONS (4)
  - Cellulitis [Unknown]
  - Peripheral swelling [Unknown]
  - Rash macular [Unknown]
  - Skin warm [Unknown]

NARRATIVE: CASE EVENT DATE: 20250101
